APPROVED DRUG PRODUCT: RAMIPRIL
Active Ingredient: RAMIPRIL
Strength: 10MG
Dosage Form/Route: CAPSULE;ORAL
Application: A077513 | Product #004
Applicant: ACTAVIS ELIZABETH LLC
Approved: Jun 18, 2008 | RLD: No | RS: No | Type: DISCN